FAERS Safety Report 21915202 (Version 10)
Quarter: 2024Q1

REPORT INFORMATION
  Report Type: Report from Study
  Country: US (occurrence: US)
  Receive Date: 20230126
  Receipt Date: 20240326
  Transmission Date: 20240410
  Serious: Yes (Hospitalization, Other)
  Sender: FDA-Public Use
  Company Number: US-BoehringerIngelheim-2022-BI-191966

PATIENT
  Age: 75 Year
  Sex: Female

DRUGS (4)
  1. OFEV [Suspect]
     Active Substance: NINTEDANIB
     Indication: Idiopathic pulmonary fibrosis
     Route: 048
     Dates: start: 20220826
  2. OFEV [Suspect]
     Active Substance: NINTEDANIB
     Route: 048
     Dates: start: 20220901, end: 20221230
  3. OFEV [Suspect]
     Active Substance: NINTEDANIB
     Route: 048
     Dates: start: 20230517
  4. OFEV [Suspect]
     Active Substance: NINTEDANIB
     Route: 048

REACTIONS (30)
  - Jaundice [Recovered/Resolved]
  - Pancreatolithiasis [Recovering/Resolving]
  - Cholecystectomy [Unknown]
  - Basal cell carcinoma [Unknown]
  - Diarrhoea [Recovered/Resolved]
  - Fatigue [Recovered/Resolved]
  - Weight decreased [Unknown]
  - Cough [Not Recovered/Not Resolved]
  - Musculoskeletal chest pain [Not Recovered/Not Resolved]
  - Asthenia [Not Recovered/Not Resolved]
  - Fatigue [Not Recovered/Not Resolved]
  - Chills [Recovered/Resolved]
  - Pain [Recovered/Resolved]
  - Hypersomnia [Not Recovered/Not Resolved]
  - Chromaturia [Recovered/Resolved]
  - Hepatic enzyme increased [Not Recovered/Not Resolved]
  - Abdominal pain upper [Unknown]
  - Abdominal pain [Recovering/Resolving]
  - Fatigue [Recovering/Resolving]
  - Diarrhoea [Recovering/Resolving]
  - Fatigue [Unknown]
  - Post procedural complication [Unknown]
  - Wound infection [Unknown]
  - Dizziness [Recovered/Resolved]
  - Constipation [Unknown]
  - Asthenia [Unknown]
  - Pain [Recovered/Resolved]
  - Foot fracture [Recovered/Resolved]
  - Rhinorrhoea [Unknown]
  - Impaired healing [Unknown]

NARRATIVE: CASE EVENT DATE: 20221023
